FAERS Safety Report 21491952 (Version 1)
Quarter: 2022Q4

REPORT INFORMATION
  Report Type: Spontaneous
  Country: US (occurrence: US)
  Receive Date: 20221021
  Receipt Date: 20221021
  Transmission Date: 20230113
  Serious: No
  Sender: FDA-Public Use
  Company Number: US-CIPLA LTD.-2022US03024

PATIENT
  Sex: Male

DRUGS (4)
  1. GABAPENTIN [Suspect]
     Active Substance: GABAPENTIN
     Indication: Nerve injury
     Dosage: UNK, 1 PILL
     Route: 065
     Dates: start: 20220421
  2. GABAPENTIN [Suspect]
     Active Substance: GABAPENTIN
     Dosage: UNK, 2 PILLS
     Route: 065
     Dates: start: 202204
  3. GABAPENTIN [Suspect]
     Active Substance: GABAPENTIN
     Dosage: UNK, 3 PILLS
     Route: 065
     Dates: start: 202205
  4. FOSINOPRIL [Concomitant]
     Active Substance: FOSINOPRIL
     Indication: Product used for unknown indication
     Dosage: 20 MILLIGRAM, BID, 10-15 YEARS AGO
     Route: 065

REACTIONS (4)
  - Nerve injury [Not Recovered/Not Resolved]
  - Drug ineffective for unapproved indication [Not Recovered/Not Resolved]
  - Off label use [Not Recovered/Not Resolved]
  - Peripheral swelling [Not Recovered/Not Resolved]

NARRATIVE: CASE EVENT DATE: 20220101
